FAERS Safety Report 10761161 (Version 3)
Quarter: 2015Q3

REPORT INFORMATION
  Report Type: Spontaneous
  Country: US (occurrence: US)
  Receive Date: 20150204
  Receipt Date: 20150810
  Transmission Date: 20151125
  Serious: No
  Sender: FDA-Public Use
  Company Number: US-PFIZER INC-2015036804

PATIENT
  Age: 67 Year
  Sex: Female
  Weight: 96.6 kg

DRUGS (20)
  1. ATORVASTATIN [Concomitant]
     Active Substance: ATORVASTATIN
     Dosage: UNK
  2. CENTRUM SILVER [Concomitant]
     Active Substance: VITAMINS
     Dosage: UNK
  3. ZETIA [Concomitant]
     Active Substance: EZETIMIBE
     Dosage: UNK
  4. SUTENT [Suspect]
     Active Substance: SUNITINIB MALATE
     Indication: SOFT TISSUE SARCOMA
     Dosage: 37.5 MG, DAILY, 6 WEEKS CONTINUOUSLY
     Dates: start: 20141225
  5. COUMADINE [Concomitant]
     Active Substance: WARFARIN SODIUM
     Dosage: DAILY
  6. ASPIRIN. [Concomitant]
     Active Substance: ASPIRIN
     Dosage: DAILY
  7. HCTZ [Concomitant]
     Active Substance: HYDROCHLOROTHIAZIDE
     Dosage: UNK
  8. OMEPRAZOLE. [Concomitant]
     Active Substance: OMEPRAZOLE
     Dosage: UNK
  9. OMEGA 369 FISH OIL [Concomitant]
     Dosage: UNK
  10. LISINOPRIL. [Concomitant]
     Active Substance: LISINOPRIL
     Dosage: UNK
  11. MAGIC MOUTHWASH [Concomitant]
     Active Substance: DIPHENHYDRAMINE HYDROCHLORIDE\LIDOCAINE HYDROCHLORIDE\NYSTATIN
     Dosage: UNK
  12. SUTENT [Suspect]
     Active Substance: SUNITINIB MALATE
     Indication: FIBROMA
     Dosage: UNK
     Route: 048
     Dates: end: 20150217
  13. WARFARIN [Concomitant]
     Active Substance: WARFARIN
     Dosage: UNK
  14. AVASTIN [Concomitant]
     Active Substance: BEVACIZUMAB
     Dosage: UNK, ONE TIME EVERY OTHER WEEK
  15. OSTEO BI-FLEX [Concomitant]
     Active Substance: CHONDROITIN SULFATE A\GLUCOSAMINE
     Dosage: UNK
  16. BIOTIN [Concomitant]
     Active Substance: BIOTIN
     Dosage: UNK
  17. LORAZEPAM. [Concomitant]
     Active Substance: LORAZEPAM
     Dosage: UNK
  18. VITAMIN A [Concomitant]
     Active Substance: VITAMIN A
     Dosage: UNK
  19. TEMODAR [Concomitant]
     Active Substance: TEMOZOLOMIDE
     Dosage: UNK,ORALLY THE FOLLOWING WEEK THAT SHE IS NOT RECEIVING AVASTIN
     Route: 048
  20. CALCIUM WITH VITAMIN D [Concomitant]
     Active Substance: CALCIUM\VITAMIN D
     Dosage: UNK

REACTIONS (15)
  - Blister [Recovered/Resolved]
  - Oral pain [Unknown]
  - Skin disorder [Unknown]
  - Disease progression [Unknown]
  - Product use issue [Unknown]
  - Pain in extremity [Unknown]
  - Dry mouth [Unknown]
  - Oral discomfort [Unknown]
  - Vaginal mucosal blistering [Unknown]
  - Dysgeusia [Unknown]
  - Vulvovaginal discomfort [Unknown]
  - Vaginal haemorrhage [Unknown]
  - Vaginal disorder [Unknown]
  - Soft tissue sarcoma [Unknown]
  - Epistaxis [Unknown]

NARRATIVE: CASE EVENT DATE: 20150107
